FAERS Safety Report 12304451 (Version 1)
Quarter: 2016Q2

REPORT INFORMATION
  Report Type: Spontaneous
  Country: US (occurrence: None)
  Receive Date: 20160425
  Receipt Date: 20160425
  Transmission Date: 20160815
  Serious: Yes (Hospitalization)
  Sender: FDA-Public Use
  Company Number: None

PATIENT
  Age: 43 Year
  Sex: Female
  Weight: 79.83 kg

DRUGS (6)
  1. VENLAFAXINE HCL XR [Concomitant]
  2. ASPIRIN. [Concomitant]
     Active Substance: ASPIRIN
  3. GABAPENTIN. [Concomitant]
     Active Substance: GABAPENTIN
  4. FLUVOXAMINE MALEATE EXTENDED-RELEASE [Suspect]
     Active Substance: FLUVOXAMINE MALEATE
     Indication: OBSESSIVE-COMPULSIVE DISORDER
     Dosage: 150MG 1 PILL DAILY DAILY MOUTH
     Route: 048
     Dates: start: 20160310, end: 20160317
  5. FLUVOXAMINE MALEATE EXTENDED-RELEASE [Suspect]
     Active Substance: FLUVOXAMINE MALEATE
     Indication: DEPRESSION
     Dosage: 150MG 1 PILL DAILY DAILY MOUTH
     Route: 048
     Dates: start: 20160310, end: 20160317
  6. ATIVAN [Concomitant]
     Active Substance: LORAZEPAM

REACTIONS (7)
  - Chest pain [None]
  - Hemiparesis [None]
  - Sensory loss [None]
  - Paraesthesia [None]
  - Activities of daily living impaired [None]
  - Hypoaesthesia [None]
  - Incontinence [None]

NARRATIVE: CASE EVENT DATE: 20160317
